FAERS Safety Report 12670842 (Version 1)
Quarter: 2016Q3

REPORT INFORMATION
  Report Type: Spontaneous
  Country: US (occurrence: US)
  Receive Date: 20160822
  Receipt Date: 20160822
  Transmission Date: 20161109
  Serious: No
  Sender: FDA-Public Use
  Company Number: US-JAZZ-2016-US-006109

PATIENT
  Sex: Female

DRUGS (25)
  1. XYREM [Suspect]
     Active Substance: SODIUM OXYBATE
     Indication: NARCOLEPSY
     Dosage: 2.25 G, BID
     Route: 048
     Dates: start: 201408, end: 201408
  2. XYREM [Suspect]
     Active Substance: SODIUM OXYBATE
     Dosage: DOSE ADJUSTMENT
     Route: 048
  3. LIPITOR [Concomitant]
     Active Substance: ATORVASTATIN CALCIUM
  4. FELDENE [Concomitant]
     Active Substance: PIROXICAM
  5. BENADRYL ALLERGY [Concomitant]
     Active Substance: DIPHENHYDRAMINE HYDROCHLORIDE
  6. GABAPENTIN. [Concomitant]
     Active Substance: GABAPENTIN
  7. RANITIDINE. [Concomitant]
     Active Substance: RANITIDINE
  8. TRAMADOL. [Concomitant]
     Active Substance: TRAMADOL
  9. LEXAPRO [Concomitant]
     Active Substance: ESCITALOPRAM OXALATE
  10. WELLBUTRIN [Concomitant]
     Active Substance: BUPROPION HYDROCHLORIDE
  11. ACTONEL [Concomitant]
     Active Substance: RISEDRONATE SODIUM
  12. NORVASC [Concomitant]
     Active Substance: AMLODIPINE BESYLATE
  13. METHOTREXATE. [Concomitant]
     Active Substance: METHOTREXATE
  14. PREDNISONE. [Concomitant]
     Active Substance: PREDNISONE
  15. LITHIUM CARBONATE. [Concomitant]
     Active Substance: LITHIUM CARBONATE
  16. LEVOTHYROXINE. [Concomitant]
     Active Substance: LEVOTHYROXINE
  17. PRILOSEC [Concomitant]
     Active Substance: OMEPRAZOLE MAGNESIUM
  18. SYNTHROID [Concomitant]
     Active Substance: LEVOTHYROXINE SODIUM
  19. XYREM [Suspect]
     Active Substance: SODIUM OXYBATE
     Dosage: 2.5 G, BID
     Route: 048
     Dates: start: 201504
  20. CLARITIN [Concomitant]
     Active Substance: LORATADINE
  21. CLINDAMYCIN HYDROCHLORIDE. [Concomitant]
     Active Substance: CLINDAMYCIN HYDROCHLORIDE
  22. VANOS [Concomitant]
     Active Substance: FLUOCINONIDE
  23. VESICARE [Concomitant]
     Active Substance: SOLIFENACIN SUCCINATE
  24. ENBREL [Concomitant]
     Active Substance: ETANERCEPT
  25. FOLIC ACID. [Concomitant]
     Active Substance: FOLIC ACID

REACTIONS (1)
  - Fall [Unknown]
